FAERS Safety Report 8879114 (Version 1)
Quarter: 2012Q4

REPORT INFORMATION
  Report Type: Spontaneous
  Country: US (occurrence: None)
  Receive Date: 20121031
  Receipt Date: 20121031
  Transmission Date: 20130627
  Serious: Yes (Hospitalization)
  Sender: FDA-Public Use
  Company Number: None

PATIENT
  Age: 36 Year
  Sex: Male
  Weight: 74.84 kg

DRUGS (1)
  1. HALDOL [Suspect]
     Indication: AGITATION
     Dosage: ?790 mg IV
     Route: 042

REACTIONS (2)
  - Torsade de pointes [None]
  - Electrocardiogram QT prolonged [None]
